FAERS Safety Report 4748030-4 (Version None)
Quarter: 2005Q3

REPORT INFORMATION
  Report Type: 
  Country: None (occurrence: None)
  Receive Date: 20050818
  Receipt Date: 20050801
  Transmission Date: 20060218
  Serious: Yes (Death, Hospitalization)
  Sender: FDA-Public Use
  Company Number: 2005AC01150

PATIENT
  Age: 27466 Day
  Sex: Male

DRUGS (6)
  1. CRESTOR [Suspect]
     Route: 048
     Dates: start: 20050404, end: 20050725
  2. ASCAL [Concomitant]
  3. PANTOPRAZOL [Concomitant]
  4. PLAVIX [Concomitant]
  5. COVERSYL [Concomitant]
  6. SELOKEEN [Concomitant]

REACTIONS (1)
  - HEPATIC FAILURE [None]
